FAERS Safety Report 14117763 (Version 1)
Quarter: 2017Q4

REPORT INFORMATION
  Report Type: Spontaneous
  Country: US (occurrence: US)
  Receive Date: 20171023
  Receipt Date: 20171023
  Transmission Date: 20180321
  Serious: No
  Sender: FDA-Public Use
  Company Number: US-ALLERGAN-1711069US

PATIENT
  Sex: Male

DRUGS (4)
  1. MINERAL OIL EMULSION [Concomitant]
     Active Substance: MINERAL OIL EMULSION
     Indication: LAXATIVE SUPPORTIVE CARE
     Dosage: UNK
  2. MAGNESIUM CITRATE NONAHYDRATE [Concomitant]
     Active Substance: MAGNESIUM CITRATE
     Indication: CONSTIPATION
  3. LINZESS [Suspect]
     Active Substance: LINACLOTIDE
     Indication: CONSTIPATION
     Dosage: 290 ?G, PRN
     Route: 048
  4. BISACODYL. [Concomitant]
     Active Substance: BISACODYL
     Indication: CONSTIPATION

REACTIONS (2)
  - Inappropriate schedule of drug administration [Unknown]
  - Therapeutic response decreased [Unknown]
